FAERS Safety Report 9233830 (Version 1)
Quarter: 2013Q2

REPORT INFORMATION
  Report Type: Spontaneous
  Country: US (occurrence: US)
  Receive Date: 20130416
  Receipt Date: 20130416
  Transmission Date: 20140414
  Serious: No
  Sender: FDA-Public Use
  Company Number: US-BANPHARM-20120065

PATIENT
  Age: 51 Year
  Sex: Female
  Weight: 79.54 kg

DRUGS (2)
  1. ALEVE LIQUID GELS 220 MG [Suspect]
     Indication: BACK PAIN
     Dosage: 1 TWICE DAILY
     Route: 048
     Dates: start: 20120808, end: 20120809
  2. LOSARTAN [Concomitant]

REACTIONS (1)
  - Drug ineffective [Unknown]
